FAERS Safety Report 5388069-1 (Version None)
Quarter: 2007Q3

REPORT INFORMATION
  Report Type: 
  Country: None (occurrence: None)
  Receive Date: 20070716
  Receipt Date: 20070518
  Transmission Date: 20080115
  Serious: Yes (Hospitalization, Other)
  Sender: FDA-Public Use
  Company Number: US-PURDUE-USA_2003_0009316

PATIENT
  Age: 31 Year
  Sex: Male
  Weight: 94 kg

DRUGS (4)
  1. OXYCONTIN [Suspect]
     Indication: MIGRAINE
     Dosage: 40 MG, SEE TEXT
     Route: 048
     Dates: start: 19981103, end: 20000601
  2. PROZAC [Concomitant]
     Indication: ANTIDEPRESSANT THERAPY
     Dosage: 20 MG, DAILY
  3. VALIUM [Concomitant]
     Indication: ANXIETY
     Dosage: 10 MG, Q6H
  4. XANAX [Concomitant]
     Indication: ANXIETY
     Dosage: .5 MG, Q6H

REACTIONS (35)
  - AFFECTIVE DISORDER [None]
  - AMNESIA [None]
  - ANXIETY [None]
  - APATHY [None]
  - ASTHENIA [None]
  - CRYING [None]
  - DECREASED INTEREST [None]
  - DEPRESSED MOOD [None]
  - DEPRESSION [None]
  - DIARRHOEA [None]
  - DISTURBANCE IN SOCIAL BEHAVIOUR [None]
  - DRUG ABUSER [None]
  - DRUG DEPENDENCE [None]
  - DRUG TOLERANCE [None]
  - DRUG WITHDRAWAL SYNDROME [None]
  - DYSPHORIA [None]
  - EMOTIONAL DISTRESS [None]
  - FEELING GUILTY [None]
  - FEELINGS OF WORTHLESSNESS [None]
  - HEADACHE [None]
  - IMPULSIVE BEHAVIOUR [None]
  - INFLUENZA LIKE ILLNESS [None]
  - INSOMNIA [None]
  - IRRITABILITY [None]
  - JUDGEMENT IMPAIRED [None]
  - LIBIDO DECREASED [None]
  - MOOD SWINGS [None]
  - MULTIPLE DRUG OVERDOSE INTENTIONAL [None]
  - NIGHT SWEATS [None]
  - PANIC ATTACK [None]
  - PNEUMONIA ASPIRATION [None]
  - PRESSURE OF SPEECH [None]
  - RESPIRATORY FAILURE [None]
  - SOCIAL AVOIDANT BEHAVIOUR [None]
  - SUICIDAL IDEATION [None]
